FAERS Safety Report 6826401-X (Version None)
Quarter: 2010Q3

REPORT INFORMATION
  Report Type: 
  Country: None (occurrence: None)
  Receive Date: 20100709
  Receipt Date: 20100701
  Transmission Date: 20110219
  Serious: Yes (Hospitalization, Other)
  Sender: FDA-Public Use
  Company Number: DE-MEDIMMUNE-MEDI-0011135

PATIENT
  Sex: Male

DRUGS (3)
  1. SYNAGIS [Suspect]
     Dates: start: 20091001, end: 20100320
  2. EPINEPHRINE [Concomitant]
  3. ACETYLSALICYLIC ACID [Concomitant]

REACTIONS (9)
  - CYANOSIS [None]
  - EPISTAXIS [None]
  - GENERAL PHYSICAL HEALTH DETERIORATION [None]
  - HAEMOGLOBIN ABNORMAL [None]
  - HAEMOGLOBIN DECREASED [None]
  - OBSTRUCTIVE AIRWAYS DISORDER [None]
  - PALLOR [None]
  - RESPIRATORY SYNCYTIAL VIRUS INFECTION [None]
  - TACHYPNOEA [None]
